FAERS Safety Report 24800245 (Version 1)
Quarter: 2025Q1

REPORT INFORMATION
  Report Type: Spontaneous
  Country: US (occurrence: None)
  Receive Date: 20250101
  Receipt Date: 20250101
  Transmission Date: 20250408
  Serious: Yes (Disabling)
  Sender: FDA-CTU
  Company Number: None

PATIENT
  Age: 47 Year
  Sex: Female

DRUGS (2)
  1. OZEMPIC [Suspect]
     Active Substance: SEMAGLUTIDE
  2. CITALOPRAM [Concomitant]
     Active Substance: CITALOPRAM

REACTIONS (4)
  - Fatigue [None]
  - Bedridden [None]
  - Loss of personal independence in daily activities [None]
  - Therapy interrupted [None]
